FAERS Safety Report 18276242 (Version 1)
Quarter: 2020Q3

REPORT INFORMATION
  Report Type: Spontaneous
  Country: US (occurrence: US)
  Receive Date: 20200917
  Receipt Date: 20200917
  Transmission Date: 20201103
  Serious: No
  Sender: FDA-Public Use
  Company Number: US-BION-008351

PATIENT

DRUGS (1)
  1. CETIRIZINE SOFT GELS 10 MG ? 40 CT [Suspect]
     Active Substance: CETIRIZINE HYDROCHLORIDE
     Indication: HYPERSENSITIVITY
     Dosage: TOOK AT NIGHT

REACTIONS (1)
  - Somnolence [Unknown]
